FAERS Safety Report 4745808-8 (Version None)
Quarter: 2005Q3

REPORT INFORMATION
  Report Type: 
  Country: None (occurrence: None)
  Receive Date: 20050815
  Receipt Date: 20050815
  Transmission Date: 20060218
  Serious: Yes (Hospitalization)
  Sender: FDA-Public Use
  Company Number: None

PATIENT
  Age: 65 Year
  Sex: Male

DRUGS (6)
  1. PIPERACILLIN/TAZOBACTAM [Suspect]
     Indication: DISEASE RECURRENCE
     Dosage: INTRAVENOUS
     Route: 042
     Dates: start: 20040515, end: 20050527
  2. PIPERACILLIN/TAZOBACTAM [Suspect]
     Indication: LIVER ABSCESS
     Dosage: INTRAVENOUS
     Route: 042
     Dates: start: 20040515, end: 20050527
  3. ATENOLOL [Concomitant]
  4. PROTONIX [Concomitant]
  5. AMARYL [Concomitant]
  6. ALLOPURINOL [Concomitant]

REACTIONS (3)
  - LEUKOPENIA [None]
  - PYREXIA [None]
  - THROMBOCYTOPENIA [None]
